FAERS Safety Report 22022475 (Version 13)
Quarter: 2023Q2

REPORT INFORMATION
  Report Type: Report from Study
  Country: US (occurrence: US)
  Receive Date: 20230222
  Receipt Date: 20230616
  Transmission Date: 20230721
  Serious: No
  Sender: FDA-Public Use
  Company Number: US-ORGANON-O2302USA001530

PATIENT
  Age: 32 Year
  Sex: Female
  Weight: 69.85 kg

DRUGS (7)
  1. IMPLANON [Suspect]
     Active Substance: ETONOGESTREL
     Indication: Contraception
     Dosage: 1 IMPLANT, ONCE, STRENGTH: 68 MILLIGRAM
     Route: 058
     Dates: start: 20180131, end: 20230303
  2. CHOLECALCIFEROL [Concomitant]
     Active Substance: CHOLECALCIFEROL
     Indication: Vitamin supplementation
     Dosage: 1 MILLIGRAM, QD, DOSAGE FORM: PILL
     Route: 048
     Dates: start: 20210125
  3. ABILIFY [Concomitant]
     Active Substance: ARIPIPRAZOLE
     Indication: Anxiety
     Dosage: 2 MILLIGRAM, QD
     Route: 048
     Dates: start: 20210125
  4. LEXAPRO [Concomitant]
     Active Substance: ESCITALOPRAM OXALATE
     Indication: Depression
     Dosage: 5 MILLIGRAM, QD, DOSAGE FORM: PILL
     Route: 048
     Dates: start: 20210326
  5. LEXAPRO [Concomitant]
     Active Substance: ESCITALOPRAM OXALATE
     Indication: Anxiety
  6. DEXMETHYLPHENIDATE [Concomitant]
     Active Substance: DEXMETHYLPHENIDATE
     Indication: Attention deficit hyperactivity disorder
     Dosage: 5 MILLIGRAM/KILOGRAM, QD
     Route: 048
     Dates: start: 20210909
  7. XYLOCAINE WITH EPINEPHRINE [Concomitant]
     Active Substance: EPINEPHRINE BITARTRATE\LIDOCAINE HYDROCHLORIDE
     Indication: Hypoaesthesia
     Dosage: 2 MILLILITER, ONCE
     Route: 058
     Dates: start: 20230203, end: 20230203

REACTIONS (2)
  - Complication of device removal [Recovered/Resolved]
  - Complication of device removal [Recovered/Resolved]

NARRATIVE: CASE EVENT DATE: 20230203
